FAERS Safety Report 9513544 (Version 3)
Quarter: 2013Q4

REPORT INFORMATION
  Report Type: Report from Study
  Country: US (occurrence: US)
  Receive Date: 20130910
  Receipt Date: 20131029
  Transmission Date: 20140711
  Serious: Yes (Other)
  Sender: FDA-Public Use
  Company Number: US-GLAXOSMITHKLINE-A1035618A

PATIENT
  Age: 31 Year
  Sex: Female

DRUGS (8)
  1. BENLYSTA [Suspect]
     Indication: SYSTEMIC LUPUS ERYTHEMATOSUS
     Dosage: 10MGK CYCLIC
     Route: 042
     Dates: start: 20121029, end: 20130523
  2. PLAQUENIL [Concomitant]
  3. CELEXA [Concomitant]
  4. WELLBUTRIN [Concomitant]
  5. LEVOTHYROXINE [Concomitant]
  6. PRENATAL VITAMIN [Concomitant]
  7. ZOFRAN [Concomitant]
  8. ANTI-MALARIAL [Concomitant]

REACTIONS (5)
  - Exposure during pregnancy [Unknown]
  - Abortion spontaneous [Unknown]
  - Foetal death [Recovered/Resolved]
  - Uterine cervix stenosis [Unknown]
  - Uterine dilation and evacuation [Unknown]
